FAERS Safety Report 5244357-0 (Version None)
Quarter: 2007Q1

REPORT INFORMATION
  Report Type: 
  Country: None (occurrence: None)
  Receive Date: 20070222
  Receipt Date: 20070212
  Transmission Date: 20070707
  Serious: Yes (Other)
  Sender: FDA-Public Use
  Company Number: GB-PFIZER INC-2007011884

PATIENT
  Age: 5 Year
  Sex: Male
  Weight: 18.5 kg

DRUGS (5)
  1. AZITHROMYCIN [Suspect]
     Indication: BRONCHIECTASIS
     Route: 048
     Dates: start: 20060413, end: 20060423
  2. AZITHROMYCIN [Suspect]
     Indication: LOWER RESPIRATORY TRACT INFECTION
  3. AUGMENTIN '125' [Concomitant]
     Indication: BRONCHIECTASIS
     Dates: start: 20060331, end: 20060413
  4. BOTOX [Concomitant]
     Indication: MUSCLE SPASTICITY
     Route: 030
  5. SEPTRIN [Concomitant]
     Indication: BRONCHIECTASIS
     Route: 048

REACTIONS (2)
  - RASH [None]
  - SKIN EXFOLIATION [None]
